FAERS Safety Report 13110226 (Version 1)
Quarter: 2017Q1

REPORT INFORMATION
  Report Type: Spontaneous
  Country: US (occurrence: US)
  Receive Date: 20170112
  Receipt Date: 20170112
  Transmission Date: 20170428
  Serious: Yes (Other)
  Sender: FDA-Public Use
  Company Number: US-ROCHE-1101961

PATIENT
  Age: 78 Year
  Sex: Male

DRUGS (10)
  1. ACTIVASE [Suspect]
     Active Substance: ALTEPLASE
     Indication: ACUTE MYOCARDIAL INFARCTION
     Route: 065
  2. NITROGLYCERIN. [Concomitant]
     Active Substance: NITROGLYCERIN
     Route: 060
  3. SERAX (UNITED STATES) [Concomitant]
     Route: 048
  4. HEPARIN LOCK FLUSH [Concomitant]
     Active Substance: HEPARIN SODIUM
     Dosage: 2000 UNIT
     Route: 040
  5. LIDOCAINE. [Concomitant]
     Active Substance: LIDOCAINE
  6. NITROGLYCERIN OINTMENT [Concomitant]
     Route: 065
  7. HEPARIN [Concomitant]
     Active Substance: HEPARIN SODIUM
     Dosage: 1200 UNITS PER HOUR
     Route: 041
  8. ASPIRIN. [Concomitant]
     Active Substance: ASPIRIN
     Route: 048
  9. NOROXIN [Concomitant]
     Active Substance: NORFLOXACIN
     Route: 048
     Dates: start: 19910519
  10. LOPRESSOR [Concomitant]
     Active Substance: METOPROLOL TARTRATE
     Route: 048
     Dates: start: 19910516

REACTIONS (2)
  - Pyrexia [Recovered/Resolved]
  - Ventricular tachycardia [Unknown]

NARRATIVE: CASE EVENT DATE: 19910515
